FAERS Safety Report 7892487-7 (Version None)
Quarter: 2011Q4

REPORT INFORMATION
  Report Type: 
  Country: None (occurrence: None)
  Receive Date: 20111104
  Receipt Date: 20111031
  Transmission Date: 20120403
  Serious: Yes (Hospitalization)
  Sender: FDA-Public Use
  Company Number: US-SANOFI-AVENTIS-2011SA023947

PATIENT
  Age: 31 Year
  Sex: Female

DRUGS (4)
  1. LANTUS [Suspect]
     Dosage: DOSE:25 UNIT(S)
     Route: 058
     Dates: start: 20080101
  2. LANTUS [Suspect]
     Dosage: 10UNITS IN AM AND 11UNITS AT LUNCH AND ADJUSTS THE LUNCH DOSE BACK 2 UNITS IF ACTIVE
     Route: 058
     Dates: end: 20100101
  3. ALL OTHER THERAPEUTIC PRODUCTS [Concomitant]
  4. SOLOSTAR [Suspect]
     Dates: start: 20100401

REACTIONS (26)
  - HYPOAESTHESIA [None]
  - UNEVALUABLE EVENT [None]
  - BLOOD GLUCOSE DECREASED [None]
  - PARAESTHESIA [None]
  - CHILLS [None]
  - BLOOD POTASSIUM DECREASED [None]
  - OROPHARYNGEAL PAIN [None]
  - HYPERHIDROSIS [None]
  - WHEEZING [None]
  - HYPOTENSION [None]
  - INAPPROPRIATE SCHEDULE OF DRUG ADMINISTRATION [None]
  - BLOOD GLUCOSE INCREASED [None]
  - SENSATION OF HEAVINESS [None]
  - BLOOD POTASSIUM INCREASED [None]
  - PAIN IN EXTREMITY [None]
  - BLOOD POTASSIUM ABNORMAL [None]
  - GAIT DISTURBANCE [None]
  - HEART RATE INCREASED [None]
  - PYREXIA [None]
  - DYSPNOEA [None]
  - BURNING SENSATION [None]
  - DRUG INEFFECTIVE [None]
  - MALAISE [None]
  - ABASIA [None]
  - ORAL CANDIDIASIS [None]
  - TREATMENT NONCOMPLIANCE [None]
